FAERS Safety Report 5874387-7 (Version None)
Quarter: 2008Q3

REPORT INFORMATION
  Report Type: 
  Country: None (occurrence: None)
  Receive Date: 20080908
  Receipt Date: 20080902
  Transmission Date: 20090109
  Serious: Yes (Hospitalization)
  Sender: FDA-Public Use
  Company Number: JP-PFIZER INC-2008071839

PATIENT
  Age: 54 Year
  Sex: Female
  Weight: 53.8 kg

DRUGS (2)
  1. AZULFIDINE EN-TABS [Suspect]
     Indication: RHEUMATOID ARTHRITIS
     Route: 048
     Dates: start: 20080526, end: 20080805
  2. CELECOXIB [Concomitant]
     Indication: RHEUMATOID ARTHRITIS
     Route: 048
     Dates: start: 20080619, end: 20080812

REACTIONS (2)
  - NEUTROPENIA [None]
  - SEPSIS [None]
